FAERS Safety Report 21914237 (Version 1)
Quarter: 2023Q1

REPORT INFORMATION
  Report Type: Report from Study
  Country: AU (occurrence: None)
  Receive Date: 20230126
  Receipt Date: 20230126
  Transmission Date: 20230418
  Serious: Yes (Other)
  Sender: FDA-Public Use
  Company Number: AU-ROCHE-3267901

PATIENT
  Age: 32 Year
  Sex: Female

DRUGS (9)
  1. ATEZOLIZUMAB [Suspect]
     Active Substance: ATEZOLIZUMAB
     Indication: Triple negative breast cancer
     Dosage: CYCLE 5, ON 14/AUG/2019, PATIENT RECEIVED LAST DOSE OF ATEZOLIZUMAB PRIOR TO ADVERSE EVENT ONSET.
     Route: 065
     Dates: start: 20190522
  2. FENTANYL [Concomitant]
     Active Substance: FENTANYL
     Dosage: 12 X 1 SOCHET
  3. MORPHINE [Concomitant]
     Active Substance: MORPHINE
  4. LYRICA [Concomitant]
     Active Substance: PREGABALIN
  5. PREGABALIN [Concomitant]
     Active Substance: PREGABALIN
     Route: 048
  6. AMITRIPTYLINE [Concomitant]
     Active Substance: AMITRIPTYLINE
     Route: 048
  7. ACETAMINOPHEN [Concomitant]
     Active Substance: ACETAMINOPHEN
  8. SENNE [Concomitant]
  9. POLYETHYLENE GLYCOLS [Concomitant]
     Active Substance: POLYETHYLENE GLYCOLS

REACTIONS (1)
  - Abdominal pain [Recovering/Resolving]

NARRATIVE: CASE EVENT DATE: 20190827
